FAERS Safety Report 5813821-5 (Version None)
Quarter: 2008Q3

REPORT INFORMATION
  Report Type: 
  Country: None (occurrence: None)
  Receive Date: 20080717
  Receipt Date: 20080710
  Transmission Date: 20090109
  Serious: Yes (Death, Hospitalization)
  Sender: FDA-Public Use
  Company Number: US-GILEAD-2008-0017133

PATIENT
  Sex: Female
  Weight: 113.5 kg

DRUGS (32)
  1. LETAIRIS [Suspect]
     Indication: PULMONARY ARTERIAL HYPERTENSION
     Route: 048
     Dates: start: 20080509
  2. ZOCOR [Concomitant]
     Route: 048
  3. MONOPRIL [Concomitant]
     Route: 048
  4. COZAAR [Concomitant]
     Route: 048
  5. FUROSEMIDE [Concomitant]
     Route: 048
  6. AMIODARONE HCL [Concomitant]
     Route: 048
  7. CYMBALTA [Concomitant]
     Route: 048
  8. REQUIP [Concomitant]
     Route: 048
  9. LYRICA [Concomitant]
     Route: 048
  10. FENTANYL TRANSDERMAL SYSTEM [Concomitant]
     Route: 061
  11. LIDODERM [Concomitant]
     Route: 061
  12. SPIRONOLACTONE [Concomitant]
     Route: 048
  13. ASPIRIN [Concomitant]
     Route: 048
  14. CLARITIN [Concomitant]
     Route: 048
  15. ATROVENT [Concomitant]
     Route: 055
  16. ALBUTEROL [Concomitant]
     Route: 055
  17. FLONASE [Concomitant]
     Route: 045
  18. NOVOLIN N [Concomitant]
     Route: 058
  19. PRECOSE [Concomitant]
     Route: 048
  20. HUMALOG [Concomitant]
     Route: 058
  21. REGLAN [Concomitant]
     Route: 048
  22. LEVOTHYROXINE SODIUM [Concomitant]
     Route: 048
  23. PROCRIT [Concomitant]
     Route: 058
  24. AMBIEN [Concomitant]
     Route: 048
  25. OMEPRAZOLE [Concomitant]
     Route: 048
  26. BETIMOL [Concomitant]
     Route: 047
  27. POTASSIUM CHLORIDE [Concomitant]
     Route: 048
  28. DOC SOD [Concomitant]
     Route: 048
  29. PROBIOTIC ACIDOPHILUS SFGL [Concomitant]
     Route: 048
  30. MULTI-VITAMIN [Concomitant]
     Route: 048
  31. ASCORBIC ACID [Concomitant]
     Route: 048
  32. VITAMIN E [Concomitant]
     Route: 048

REACTIONS (3)
  - CLOSTRIDIUM DIFFICILE COLITIS [None]
  - RENAL FAILURE [None]
  - RESPIRATORY FAILURE [None]
